FAERS Safety Report 10528976 (Version 1)
Quarter: 2014Q4

REPORT INFORMATION
  Report Type: Spontaneous
  Country: NL (occurrence: NL)
  Receive Date: 20141020
  Receipt Date: 20141020
  Transmission Date: 20150528
  Serious: Yes (Other)
  Sender: FDA-Public Use
  Company Number: NL-ELI_LILLY_AND_COMPANY-NL201409006914

PATIENT
  Age: 43 Year
  Sex: Male

DRUGS (1)
  1. ZYPADHERA [Suspect]
     Active Substance: OLANZAPINE PAMOATE
     Indication: PRODUCT USED FOR UNKNOWN INDICATION
     Dosage: 210 MG, EVERY 3 WEEKS
     Route: 065

REACTIONS (4)
  - Fatigue [Unknown]
  - Somnolence [Unknown]
  - Vision blurred [Unknown]
  - Disorientation [Unknown]

NARRATIVE: CASE EVENT DATE: 20140917
